FAERS Safety Report 18373031 (Version 2)
Quarter: 2020Q4

REPORT INFORMATION
  Report Type: Spontaneous
  Country: NL (occurrence: IT)
  Receive Date: 20201012
  Receipt Date: 20201012
  Transmission Date: 20210114
  Serious: Yes (Other)
  Sender: FDA-Public Use
  Company Number: IT-FRESENIUS KABI-FK202010342

PATIENT
  Age: 83 Year
  Sex: Female
  Weight: 70 kg

DRUGS (2)
  1. PIPERACILLIN/TAZOBACTAM (MANUFACTURER UNKNOWN) [Suspect]
     Active Substance: PIPERACILLIN SODIUM\TAZOBACTAM SODIUM
     Indication: CHOLANGITIS
     Dosage: 4.5 G/DAY
     Route: 042
     Dates: start: 20200911
  2. CASPOFUNGIN (MANUFACTURER UNKNOWN) [Suspect]
     Active Substance: CASPOFUNGIN
     Indication: FUNGAEMIA
     Dosage: 50 MG/DAY
     Route: 042
     Dates: start: 20200922

REACTIONS (2)
  - Drug interaction [Not Recovered/Not Resolved]
  - Hypokalaemia [Not Recovered/Not Resolved]

NARRATIVE: CASE EVENT DATE: 20200922
